FAERS Safety Report 19482181 (Version 1)
Quarter: 2021Q3

REPORT INFORMATION
  Report Type: Spontaneous
  Country: US (occurrence: US)
  Receive Date: 20210701
  Receipt Date: 20210701
  Transmission Date: 20211014
  Serious: Yes (Hospitalization, Other)
  Sender: FDA-Public Use
  Company Number: US-ROCHE-2859534

PATIENT
  Sex: Female
  Weight: 61.29 kg

DRUGS (10)
  1. RITUXIMAB. [Suspect]
     Active Substance: RITUXIMAB
     Route: 065
  2. VINCRISTINE [Concomitant]
     Active Substance: VINCRISTINE
     Indication: B-CELL LYMPHOMA
     Dates: start: 2018
  3. PREDNISONE. [Concomitant]
     Active Substance: PREDNISONE
     Indication: B-CELL LYMPHOMA
     Dates: start: 2018
  4. POLIVY [Suspect]
     Active Substance: POLATUZUMAB VEDOTIN-PIIQ
     Indication: B-CELL LYMPHOMA
     Route: 065
     Dates: end: 2020
  5. ETOPOSIDE. [Concomitant]
     Active Substance: ETOPOSIDE
     Indication: B-CELL LYMPHOMA
  6. DOXORUBICIN [Concomitant]
     Active Substance: DOXORUBICIN
     Indication: B-CELL LYMPHOMA
     Dates: start: 2018
  7. IFOSFAMIDE. [Concomitant]
     Active Substance: IFOSFAMIDE
     Indication: B-CELL LYMPHOMA
  8. CYCLOPHOSPHAMIDE. [Concomitant]
     Active Substance: CYCLOPHOSPHAMIDE
     Indication: B-CELL LYMPHOMA
     Dates: start: 2018
  9. CARBOPLATIN. [Concomitant]
     Active Substance: CARBOPLATIN
     Indication: B-CELL LYMPHOMA
  10. RITUXIMAB. [Suspect]
     Active Substance: RITUXIMAB
     Indication: B-CELL LYMPHOMA
     Route: 065
     Dates: start: 2018

REACTIONS (7)
  - Pulmonary oedema [Unknown]
  - Hypersensitivity [Unknown]
  - Seizure [Unknown]
  - Delirium [Unknown]
  - Delusion [Unknown]
  - Blood count abnormal [Unknown]
  - Abdominal pain [Unknown]
